FAERS Safety Report 18434305 (Version 1)
Quarter: 2020Q4

REPORT INFORMATION
  Report Type: Spontaneous
  Country: US (occurrence: US)
  Receive Date: 20201028
  Receipt Date: 20201028
  Transmission Date: 20210114
  Serious: Yes (Hospitalization)
  Sender: FDA-Public Use
  Company Number: US-EMCURE PHARMACEUTICALS LTD-2020-EPL-001626

PATIENT

DRUGS (1)
  1. VERAPAMIL HYDROCHLORIDE. [Suspect]
     Active Substance: VERAPAMIL HYDROCHLORIDE
     Indication: HYPERTENSION
     Dosage: 40 MILLIGRAM, TWICE A DAY
     Route: 048
     Dates: end: 20021019

REACTIONS (9)
  - Psychotic symptom [Unknown]
  - Feeling abnormal [Unknown]
  - Lip swelling [Recovering/Resolving]
  - Heart rate irregular [Recovering/Resolving]
  - Heart rate increased [Recovering/Resolving]
  - Pharyngeal swelling [Recovering/Resolving]
  - Insomnia [Recovering/Resolving]
  - Product substitution issue [Unknown]
  - Swollen tongue [Recovering/Resolving]
